APPROVED DRUG PRODUCT: TRAVAMULSION 10%
Active Ingredient: SOYBEAN OIL
Strength: 10%
Dosage Form/Route: INJECTABLE;INJECTION
Application: N018660 | Product #001
Applicant: BAXTER HEALTHCARE CORP
Approved: Feb 26, 1982 | RLD: No | RS: No | Type: DISCN